FAERS Safety Report 7921614-8 (Version None)
Quarter: 2011Q4

REPORT INFORMATION
  Report Type: 
  Country: None (occurrence: None)
  Receive Date: 20111117
  Receipt Date: 20111108
  Transmission Date: 20120403
  Serious: Yes (Death, Other)
  Sender: FDA-Public Use
  Company Number: US-BAXTER-2010BH003641

PATIENT
  Age: 59 Year
  Sex: Male

DRUGS (23)
  1. ALBUTEROL [Concomitant]
     Indication: DYSPNOEA
     Route: 055
  2. FLAXSEED OIL [Concomitant]
     Indication: PRODUCT USED FOR UNKNOWN INDICATION
     Route: 065
  3. HERBAL PREPARATION [Concomitant]
     Indication: PRODUCT USED FOR UNKNOWN INDICATION
     Route: 048
  4. HEPARIN SODIUM 1,000 UNITS AND SODIUM CHLORIDE 0.9% [Suspect]
     Indication: PRODUCT USED FOR UNKNOWN INDICATION
     Route: 065
  5. HEPARIN SODIUM INJECTION [Suspect]
     Route: 042
     Dates: start: 20080115, end: 20080115
  6. HEPARIN SODIUM INJECTION [Suspect]
     Route: 042
     Dates: start: 20080107, end: 20080302
  7. AZITHROMYCIN [Concomitant]
     Indication: PRODUCT USED FOR UNKNOWN INDICATION
     Route: 065
  8. HEPARIN SODIUM INJECTION [Suspect]
     Route: 042
     Dates: start: 20080107, end: 20080302
  9. HEPARIN SODIUM INJECTION [Suspect]
     Indication: PULMONARY EMBOLISM
     Route: 042
     Dates: start: 20080107, end: 20080302
  10. HEPARIN SODIUM INJECTION [Suspect]
     Route: 042
     Dates: start: 20080107, end: 20080302
  11. PROVENTIL [Concomitant]
     Indication: DYSPNOEA
     Route: 065
  12. HEPARIN SODIUM INJECTION [Suspect]
     Indication: CENTRAL VENOUS CATHETERISATION
     Route: 042
     Dates: start: 20080107, end: 20080302
  13. HEPARIN SODIUM INJECTION [Suspect]
     Route: 042
     Dates: start: 20080301, end: 20080301
  14. HEPARIN SODIUM INJECTION [Suspect]
     Route: 042
     Dates: start: 20080107, end: 20080302
  15. HEPARIN SODIUM INJECTION [Suspect]
     Route: 042
     Dates: start: 20080107, end: 20080302
  16. HEPARIN SODIUM INJECTION [Suspect]
     Route: 042
     Dates: start: 20080107, end: 20080302
  17. HEPARIN SODIUM INJECTION [Suspect]
     Route: 042
     Dates: start: 20080107, end: 20080302
  18. HEPARIN SODIUM INJECTION [Suspect]
     Route: 042
     Dates: start: 20080115, end: 20080115
  19. MULTI-VITAMINS [Concomitant]
     Indication: PRODUCT USED FOR UNKNOWN INDICATION
     Route: 065
  20. HEPARIN SODIUM INJECTION [Suspect]
     Route: 042
     Dates: start: 20080115, end: 20080115
  21. HEPARIN SODIUM INJECTION [Suspect]
     Route: 042
     Dates: start: 20080301, end: 20080301
  22. HEPARIN SODIUM INJECTION [Suspect]
     Route: 042
     Dates: start: 20080301, end: 20080301
  23. FISH OIL [Concomitant]
     Indication: PRODUCT USED FOR UNKNOWN INDICATION
     Route: 065

REACTIONS (21)
  - COLITIS ISCHAEMIC [None]
  - RENAL FAILURE [None]
  - HYPERTENSION [None]
  - HYPERHIDROSIS [None]
  - ORGAN FAILURE [None]
  - GASTROINTESTINAL HAEMORRHAGE [None]
  - PULMONARY EMBOLISM [None]
  - SEPSIS [None]
  - DYSPNOEA [None]
  - CARDIAC ARREST [None]
  - METASTATIC GASTRIC CANCER [None]
  - HYPOTENSION [None]
  - ANAEMIA [None]
  - CHEST PAIN [None]
  - HYPOPHAGIA [None]
  - THROMBOCYTOPENIA [None]
  - PRURITUS [None]
  - HEADACHE [None]
  - RASH [None]
  - ATRIAL FIBRILLATION [None]
  - NEUTROPENIA [None]
